FAERS Safety Report 23604473 (Version 22)
Quarter: 2025Q2

REPORT INFORMATION
  Report Type: Spontaneous
  Country: CA (occurrence: CA)
  Receive Date: 20240307
  Receipt Date: 20250603
  Transmission Date: 20250716
  Serious: Yes (Hospitalization, Other)
  Sender: CELLTRION
  Company Number: CA-CELLTRION INC.-2024CA005666

PATIENT

DRUGS (17)
  1. INFLECTRA [Suspect]
     Active Substance: INFLIXIMAB-DYYB
     Indication: Crohn^s disease
     Route: 042
     Dates: start: 20230802
  2. INFLECTRA [Suspect]
     Active Substance: INFLIXIMAB-DYYB
     Route: 042
     Dates: start: 20240229
  3. INFLECTRA [Suspect]
     Active Substance: INFLIXIMAB-DYYB
     Route: 042
     Dates: start: 20240516
  4. INFLECTRA [Suspect]
     Active Substance: INFLIXIMAB-DYYB
     Route: 042
     Dates: start: 20240709
  5. INFLECTRA [Suspect]
     Active Substance: INFLIXIMAB-DYYB
     Route: 042
     Dates: start: 20250205
  6. INFLECTRA [Suspect]
     Active Substance: INFLIXIMAB-DYYB
     Route: 042
     Dates: start: 20250404
  7. INFLECTRA [Suspect]
     Active Substance: INFLIXIMAB-DYYB
     Route: 042
     Dates: start: 20250526
  8. CANDESARTAN [Concomitant]
     Active Substance: CANDESARTAN
  9. CHLORTHALIDONE [Concomitant]
     Active Substance: CHLORTHALIDONE
  10. CIPRO [Concomitant]
     Active Substance: CIPROFLOXACIN HYDROCHLORIDE
  11. DOMPERIDONE [Concomitant]
     Active Substance: DOMPERIDONE
  12. INVOKANA [Concomitant]
     Active Substance: CANAGLIFLOZIN
  13. LEVOMEPROMAZINE MALEATE [Concomitant]
     Active Substance: LEVOMEPROMAZINE MALEATE
  14. METRONIDAZOLE [Concomitant]
     Active Substance: METRONIDAZOLE
  15. OZEMPIC [Concomitant]
     Active Substance: SEMAGLUTIDE
     Dosage: 1 DF, WEEKLY (UNKNOWN DOSE, WEEKLY INJECTIONS )
     Route: 065
  16. PRAMIPEXOLE [Concomitant]
     Active Substance: PRAMIPEXOLE
  17. PRAVASTATIN [Concomitant]
     Active Substance: PRAVASTATIN

REACTIONS (8)
  - Arthropathy [Recovering/Resolving]
  - Anaemia [Not Recovered/Not Resolved]
  - Arthritis infective [Recovered/Resolved]
  - Post procedural infection [Recovered/Resolved]
  - Fistula [Unknown]
  - Rectal haemorrhage [Unknown]
  - Incision site pain [Not Recovered/Not Resolved]
  - Condition aggravated [Recovering/Resolving]

NARRATIVE: CASE EVENT DATE: 20240101
